FAERS Safety Report 19462297 (Version 1)
Quarter: 2021Q2

REPORT INFORMATION
  Report Type: Spontaneous
  Country: PT (occurrence: PT)
  Receive Date: 20210625
  Receipt Date: 20210625
  Transmission Date: 20210717
  Serious: Yes (Disabling)
  Sender: FDA-Public Use
  Company Number: PT-HIKMA PHARMACEUTICALS USA INC.-PT-H14001-21-54701

PATIENT
  Age: 17 Year
  Sex: Male

DRUGS (1)
  1. AMOXICILINA/ACIDO CLAVULANICO HIKMA [Suspect]
     Active Substance: AMOXICILLIN\CLAVULANATE POTASSIUM
     Indication: PRODUCT USED FOR UNKNOWN INDICATION
     Dosage: UNKNOWN 8/8H
     Route: 042
     Dates: start: 20210526, end: 20210526

REACTIONS (4)
  - Dyspnoea [Recovering/Resolving]
  - Tachypnoea [Recovering/Resolving]
  - Tachycardia [Recovering/Resolving]
  - Rash maculo-papular [Recovering/Resolving]

NARRATIVE: CASE EVENT DATE: 20210526
